FAERS Safety Report 13452171 (Version 3)
Quarter: 2017Q2

REPORT INFORMATION
  Report Type: Spontaneous
  Country: DE (occurrence: DE)
  Receive Date: 20170418
  Receipt Date: 20170602
  Transmission Date: 20170830
  Serious: Yes (Hospitalization)
  Sender: FDA-Public Use
  Company Number: DE-TOLMAR, INC.-2017DE004711

PATIENT
  Age: 79 Year
  Sex: Male
  Weight: 101 kg

DRUGS (2)
  1. ELIGARD [Suspect]
     Active Substance: LEUPROLIDE ACETATE
     Indication: PRODUCT USED FOR UNKNOWN INDICATION
     Dosage: 22.5 MG, UNK
     Route: 065
  2. ELIGARD [Suspect]
     Active Substance: LEUPROLIDE ACETATE
     Dosage: 22.5 MG, UNK
     Route: 065
     Dates: start: 201611

REACTIONS (8)
  - Blood test abnormal [Unknown]
  - Hot flush [Unknown]
  - Neuralgia [Unknown]
  - Bone density decreased [Unknown]
  - Overdose [Unknown]
  - Myalgia [Unknown]
  - Drug dose omission [Unknown]
  - Gait disturbance [Unknown]

NARRATIVE: CASE EVENT DATE: 201701
